FAERS Safety Report 8901195 (Version 1)
Quarter: 2012Q4

REPORT INFORMATION
  Report Type: 
  Country: RO (occurrence: RO)
  Receive Date: 20121109
  Receipt Date: 20121109
  Transmission Date: 20130627
  Serious: Yes (Other)
  Sender: FDA-Public Use
  Company Number: RO-ROCHE-CID000000002222416

PATIENT
  Age: 11 Year
  Sex: Male

DRUGS (2)
  1. SOMATROPIN [Suspect]
     Indication: GROWTH HORMONE DEFICIENCY
     Route: 065
  2. SOMATROPIN [Suspect]
     Route: 065

REACTIONS (1)
  - Restrictive cardiomyopathy [Unknown]
